FAERS Safety Report 5975935-9 (Version None)
Quarter: 2008Q4

REPORT INFORMATION
  Report Type: 
  Country: None (occurrence: None)
  Receive Date: 20081202
  Receipt Date: 20081117
  Transmission Date: 20090506
  Serious: Yes (Other)
  Sender: FDA-Public Use
  Company Number: GB-GENENTECH-258736

PATIENT

DRUGS (5)
  1. BLINDED PLACEBO [Suspect]
     Indication: SJOGREN'S SYNDROME
     Dosage: 1 G, UNK
     Route: 042
  2. BLINDED RITUXIMAB [Suspect]
     Indication: SJOGREN'S SYNDROME
     Dosage: 1 G, UNK
     Route: 042
  3. METHYLPREDNISOLONE 16MG TAB [Suspect]
     Indication: DRUG USE FOR UNKNOWN INDICATION
     Dosage: 100 MG, QD
     Route: 065
  4. PREDNISOLONE [Suspect]
     Indication: DRUG USE FOR UNKNOWN INDICATION
     Dosage: 60 MG, QD
     Route: 048
  5. PREDNISOLONE [Suspect]
     Dosage: 30 MG, QD
     Route: 048

REACTIONS (1)
  - SERUM SICKNESS [None]
